FAERS Safety Report 17210773 (Version 5)
Quarter: 2020Q1

REPORT INFORMATION
  Report Type: Report from Study
  Country: US (occurrence: US)
  Receive Date: 20191227
  Receipt Date: 20200318
  Transmission Date: 20200409
  Serious: Yes (Death, Hospitalization)
  Sender: FDA-Public Use
  Company Number: US-ACTELION-A-NJ2018-174062

PATIENT
  Age: 69 Year
  Sex: Female

DRUGS (3)
  1. OPSUMIT [Suspect]
     Active Substance: MACITENTAN
     Dosage: 5 MG, QD
     Route: 048
  2. OPSUMIT [Suspect]
     Active Substance: MACITENTAN
     Indication: PULMONARY ARTERIAL HYPERTENSION
     Dosage: 10 MG, QD
     Route: 048
     Dates: start: 20180606, end: 20200219
  3. OXYGEN. [Concomitant]
     Active Substance: OXYGEN

REACTIONS (12)
  - Hospitalisation [Unknown]
  - Limb injury [Unknown]
  - Death [Fatal]
  - Sinusitis [Unknown]
  - Femur fracture [Recovered/Resolved]
  - Headache [Unknown]
  - Nasopharyngitis [Unknown]
  - Bone operation [Recovered/Resolved]
  - Dizziness [Not Recovered/Not Resolved]
  - Fall [Unknown]
  - Walking distance test abnormal [Unknown]
  - Nasal congestion [Unknown]

NARRATIVE: CASE EVENT DATE: 201806
